FAERS Safety Report 8902345 (Version 1)
Quarter: 2012Q4

REPORT INFORMATION
  Report Type: 
  Country: DE (occurrence: DE)
  Receive Date: 20121112
  Receipt Date: 20121112
  Transmission Date: 20130627
  Serious: Yes (Hospitalization, Other)
  Sender: FDA-Public Use
  Company Number: DE-ASTRAZENECA-2012SE83744

PATIENT
  Sex: Male
  Weight: 3.2 kg

DRUGS (4)
  1. SEROQUEL [Suspect]
     Indication: DEPRESSION
     Route: 064
  2. SEROQUEL [Suspect]
     Indication: DEPRESSION
     Route: 064
     Dates: start: 20090701, end: 20100406
  3. TREVILOR [Suspect]
     Indication: DEPRESSION
     Route: 064
     Dates: start: 20090701, end: 20100406
  4. FOLSAURE [Concomitant]
     Indication: PROPHYLAXIS OF NEURAL TUBE DEFECT
     Route: 064

REACTIONS (4)
  - Infantile apnoeic attack [Recovering/Resolving]
  - Coordination abnormal [Not Recovered/Not Resolved]
  - Hypotonia neonatal [Not Recovered/Not Resolved]
  - Grand mal convulsion [Recovered/Resolved]
